FAERS Safety Report 20838011 (Version 1)
Quarter: 2022Q2

REPORT INFORMATION
  Report Type: Spontaneous
  Country: US (occurrence: US)
  Receive Date: 20220517
  Receipt Date: 20220517
  Transmission Date: 20220721
  Serious: Yes (Other)
  Sender: FDA-Public Use
  Company Number: US-ALLERGAN-2136728US

PATIENT

DRUGS (1)
  1. KYBELLA [Suspect]
     Active Substance: DEOXYCHOLIC ACID
     Indication: Lipolysis procedure
     Dosage: UNK UNK, SINGLE

REACTIONS (5)
  - Skin necrosis [Unknown]
  - Wrong technique in product usage process [Unknown]
  - Nodule [Unknown]
  - Induration [Unknown]
  - Skin ulcer [Unknown]
